FAERS Safety Report 7108177-4 (Version None)
Quarter: 2010Q4

REPORT INFORMATION
  Report Type: 
  Country: None (occurrence: None)
  Receive Date: 20101117
  Receipt Date: 20101105
  Transmission Date: 20110411
  Serious: Yes (Other)
  Sender: FDA-Public Use
  Company Number: BE-JNJFOC-20101102769

PATIENT
  Age: 14 Year
  Sex: Male

DRUGS (2)
  1. REMICADE [Suspect]
     Indication: CROHN'S DISEASE
     Dosage: 7 INFUSIONS
     Route: 042
  2. REMICADE [Suspect]
     Dosage: 7 INFUSIONS
     Route: 042

REACTIONS (1)
  - CYTOLYTIC HEPATITIS [None]
